FAERS Safety Report 19116624 (Version 3)
Quarter: 2021Q4

REPORT INFORMATION
  Report Type: Report from Study
  Country: US (occurrence: US)
  Receive Date: 20210409
  Receipt Date: 20211019
  Transmission Date: 20220303
  Serious: Yes (Other)
  Sender: FDA-Public Use
  Company Number: US-BRISTOL-MYERS SQUIBB COMPANY-BMS-2021-031374

PATIENT
  Age: 67 Year
  Sex: Male

DRUGS (3)
  1. DASATINIB [Suspect]
     Active Substance: DASATINIB
     Indication: Chronic myeloid leukaemia
     Dosage: 20 MILLIGRAM, QD
     Route: 048
  2. DASATINIB [Suspect]
     Active Substance: DASATINIB
     Dosage: 100 MILLIGRAM, QD
     Route: 065
  3. DASATINIB [Suspect]
     Active Substance: DASATINIB
     Dosage: 20 MILLIGRAM (TAKE TWO TABLETS BY MOUTH EVERY DAY)
     Route: 048

REACTIONS (3)
  - Acute kidney injury [Unknown]
  - Drug hypersensitivity [Unknown]
  - Prescribed underdose [Unknown]
